FAERS Safety Report 5104747-3 (Version None)
Quarter: 2006Q3

REPORT INFORMATION
  Report Type: 
  Country: None (occurrence: None)
  Receive Date: 20060914
  Receipt Date: 20060823
  Transmission Date: 20061208
  Serious: Yes (Hospitalization)
  Sender: FDA-Public Use
  Company Number: CM-MERCK-0608USA05717

PATIENT
  Age: 44 Year
  Sex: Male
  Weight: 42 kg

DRUGS (1)
  1. STROMECTOL [Suspect]
     Route: 048
     Dates: start: 20060728, end: 20060728

REACTIONS (5)
  - ARTHRALGIA [None]
  - CONJUNCTIVAL HAEMORRHAGE [None]
  - MYALGIA [None]
  - PRURITUS [None]
  - PYREXIA [None]
